FAERS Safety Report 25250629 (Version 2)
Quarter: 2025Q4

REPORT INFORMATION
  Report Type: Report from Study
  Country: BR (occurrence: BR)
  Receive Date: 20250429
  Receipt Date: 20251010
  Transmission Date: 20260119
  Serious: No
  Sender: SANDOZ
  Company Number: BR-SANDOZ-SDZ2025BR026839

PATIENT
  Age: 12 Year
  Sex: Female

DRUGS (3)
  1. OMNITROPE [Suspect]
     Active Substance: SOMATROPIN
     Indication: Product used for unknown indication
     Dosage: 1.5 MG, QD
     Route: 058
     Dates: start: 202501
  2. OMNITROPE [Suspect]
     Active Substance: SOMATROPIN
     Dosage: 15MG
     Route: 058
  3. OMNITROPE [Suspect]
     Active Substance: SOMATROPIN
     Dosage: UNK
     Route: 065

REACTIONS (2)
  - Drug dose omission by device [Unknown]
  - Device issue [Unknown]

NARRATIVE: CASE EVENT DATE: 20250424
